FAERS Safety Report 11444372 (Version 3)
Quarter: 2015Q4

REPORT INFORMATION
  Report Type: Spontaneous
  Country: ES (occurrence: ES)
  Receive Date: 20150902
  Receipt Date: 20151006
  Transmission Date: 20160304
  Serious: Yes (Hospitalization)
  Sender: FDA-Public Use
  Company Number: ES-ROCHE-1628533

PATIENT
  Age: 41 Year
  Sex: Female
  Weight: 57 kg

DRUGS (1)
  1. TOCILIZUMAB [Suspect]
     Active Substance: TOCILIZUMAB
     Indication: ENDOCRINE OPHTHALMOPATHY
     Dosage: ANOTHER DOSE OF TOCILIZUMAB: APPROX. 19/JUL/2015, THIRD DOSE OF TOCILIZUMAB WAS ADMINISTERED IN THE
     Route: 042
     Dates: end: 20150619

REACTIONS (4)
  - Paraesthesia [Unknown]
  - Multiple sclerosis [Unknown]
  - Off label use [Unknown]
  - Demyelination [Not Recovered/Not Resolved]

NARRATIVE: CASE EVENT DATE: 20150817
